FAERS Safety Report 9318889 (Version 1)
Quarter: 2013Q2

REPORT INFORMATION
  Report Type: Spontaneous
  Country: US (occurrence: US)
  Receive Date: 20130530
  Receipt Date: 20130530
  Transmission Date: 20140414
  Serious: No
  Sender: FDA-Public Use
  Company Number: US-NOVEN-13US006335

PATIENT
  Age: 10 Year
  Sex: Male
  Weight: 56.69 kg

DRUGS (5)
  1. DAYTRANA [Suspect]
     Indication: ATTENTION DEFICIT/HYPERACTIVITY DISORDER
     Dosage: 30 MG, UNK
     Route: 062
  2. DAYTRANA [Suspect]
     Indication: AUTISM SPECTRUM DISORDER
  3. DEPAKOTE [Concomitant]
  4. SYNTHROID [Concomitant]
  5. CONCERTA [Concomitant]
     Route: 048

REACTIONS (4)
  - Disturbance in social behaviour [Unknown]
  - Abnormal behaviour [Unknown]
  - Drug ineffective [Not Recovered/Not Resolved]
  - Off label use [Recovered/Resolved]
